FAERS Safety Report 13854136 (Version 2)
Quarter: 2017Q3

REPORT INFORMATION
  Report Type: Spontaneous
  Country: PH (occurrence: PH)
  Receive Date: 20170809
  Receipt Date: 20170815
  Transmission Date: 20171127
  Serious: Yes (Other)
  Sender: FDA-Public Use
  Company Number: PH-PFIZER INC-2017335109

PATIENT
  Age: 4 Decade
  Sex: Male

DRUGS (2)
  1. DOLCET [Concomitant]
  2. CELEBREX [Suspect]
     Active Substance: CELECOXIB
     Indication: ARTHRALGIA
     Dosage: 200 MG, 2X/DAY

REACTIONS (2)
  - Hepatic failure [Unknown]
  - Apparent death [Unknown]
